FAERS Safety Report 4439192-7 (Version None)
Quarter: 2004Q3

REPORT INFORMATION
  Report Type: 
  Country: None (occurrence: None)
  Receive Date: 20040831
  Receipt Date: 20040816
  Transmission Date: 20050211
  Serious: Yes (Hospitalization)
  Sender: FDA-Public Use
  Company Number: 04P-163-0251498-00

PATIENT
  Age: 43 Year
  Sex: Female
  Weight: 88.2 kg

DRUGS (17)
  1. HUMIRA [Suspect]
     Indication: RHEUMATOID ARTHRITIS
     Dosage: 40 MG, 1 IN 2 WK, SUBCUTANEOUS
     Route: 058
     Dates: start: 20010326, end: 20040223
  2. HUMIRA [Suspect]
     Indication: RHEUMATOID ARTHRITIS
     Dosage: 40 MG, 1 IN 2 WK, SUBCUTANEOUS
     Route: 058
     Dates: start: 20040426
  3. METHOTREXATE [Concomitant]
  4. PARACETAMOL [Concomitant]
  5. ZITHROMAX [Concomitant]
  6. DESONIDE [Concomitant]
  7. PSEUDOEPHEDRINE HYDROCHLORIDE [Concomitant]
  8. BISMUTH SUBSALICYLATE [Concomitant]
  9. LOPERAMIDE HYDROCHLORIDE [Concomitant]
  10. OMEPRAZOLE [Concomitant]
  11. METHYLPREDNISOLONE [Concomitant]
  12. LIDOCAINE [Concomitant]
  13. DEXAMETHASONE [Concomitant]
  14. PREDNISONE [Concomitant]
  15. PROPRANOLOL HYDROCHLORIDE [Concomitant]
  16. LITHYRONINE SODIUM [Concomitant]
  17. DESOGESTREL AND ETHINYL ESTRADIOL [Concomitant]

REACTIONS (8)
  - ARTHRALGIA [None]
  - DYSPNOEA [None]
  - FATIGUE [None]
  - HYPERHIDROSIS [None]
  - INSOMNIA [None]
  - PALPITATIONS [None]
  - PAPILLARY THYROID CANCER [None]
  - TREMOR [None]
